FAERS Safety Report 15003093 (Version 1)
Quarter: 2018Q2

REPORT INFORMATION
  Report Type: Spontaneous
  Country: US (occurrence: US)
  Receive Date: 20180612
  Receipt Date: 20180612
  Transmission Date: 20180711
  Serious: No
  Sender: FDA-Public Use
  Company Number: US-ASTRAZENECA-2018SE64856

PATIENT
  Age: 62 Year
  Sex: Male
  Weight: 108.9 kg

DRUGS (3)
  1. XIGDUO XR [Concomitant]
     Active Substance: DAPAGLIFLOZIN PROPANEDIOL\METFORMIN HYDROCHLORIDE
     Indication: TYPE 2 DIABETES MELLITUS
     Dosage: 5MG 1000MG 2 TABS DAILY
     Route: 048
  2. INSULIN [Concomitant]
     Active Substance: INSULIN NOS
     Dosage: WHICH TAKES 2.5CC EVERY 3 DAYS
  3. BYDUREON BCISE [Suspect]
     Active Substance: EXENATIDE
     Indication: TYPE 2 DIABETES MELLITUS
     Route: 058
     Dates: start: 201804

REACTIONS (3)
  - Injection site extravasation [Unknown]
  - Device malfunction [Unknown]
  - Underdose [Not Recovered/Not Resolved]

NARRATIVE: CASE EVENT DATE: 2018
